FAERS Safety Report 9063122 (Version 2)
Quarter: 2013Q2

REPORT INFORMATION
  Report Type: Report from Study
  Country: JP (occurrence: JP)
  Receive Date: 20130213
  Receipt Date: 20130416
  Transmission Date: 20140414
  Serious: Yes (Hospitalization)
  Sender: FDA-Public Use
  Company Number: JP-JNJFOC-20130202574

PATIENT
  Age: 60 Year
  Sex: Female
  Weight: 55 kg

DRUGS (30)
  1. REMICADE [Suspect]
     Indication: COLITIS ULCERATIVE
     Route: 042
     Dates: start: 20120125
  2. REMICADE [Suspect]
     Indication: COLITIS ULCERATIVE
     Dosage: 2ND DOSE
     Route: 042
     Dates: start: 20110830
  3. REMICADE [Suspect]
     Indication: COLITIS ULCERATIVE
     Route: 042
     Dates: start: 20110928
  4. REMICADE [Suspect]
     Indication: COLITIS ULCERATIVE
     Route: 042
     Dates: start: 20111122
  5. REMICADE [Suspect]
     Indication: COLITIS ULCERATIVE
     Route: 042
     Dates: start: 20110816
  6. REMICADE [Suspect]
     Indication: COLITIS ULCERATIVE
     Dosage: 6TH DOSE
     Route: 042
     Dates: start: 20120321
  7. REMICADE [Suspect]
     Indication: COLITIS ULCERATIVE
     Dosage: 7TH DOSE
     Route: 042
     Dates: start: 20120523
  8. REMICADE [Suspect]
     Indication: COLITIS ULCERATIVE
     Route: 042
     Dates: start: 20120718
  9. REMICADE [Suspect]
     Indication: COLITIS ULCERATIVE
     Route: 042
     Dates: start: 20120912
  10. RESTAMIN [Concomitant]
     Indication: PROPHYLAXIS
     Route: 048
     Dates: start: 20110816, end: 20110816
  11. RESTAMIN [Concomitant]
     Indication: PROPHYLAXIS
     Route: 048
     Dates: start: 20110830, end: 20110830
  12. RESTAMIN [Concomitant]
     Indication: PROPHYLAXIS
     Route: 048
     Dates: start: 20110928, end: 20110928
  13. RESTAMIN [Concomitant]
     Indication: PROPHYLAXIS
     Route: 048
     Dates: start: 20120125, end: 20120125
  14. RESTAMIN [Concomitant]
     Indication: PROPHYLAXIS
     Route: 048
     Dates: start: 20120321, end: 20120321
  15. RESTAMIN [Concomitant]
     Indication: PROPHYLAXIS
     Route: 048
     Dates: start: 20120523, end: 20120523
  16. RESTAMIN [Concomitant]
     Indication: PROPHYLAXIS
     Route: 048
     Dates: start: 20120718, end: 20120718
  17. RESTAMIN [Concomitant]
     Indication: PROPHYLAXIS
     Route: 048
     Dates: start: 20120912, end: 20120912
  18. RESTAMIN [Concomitant]
     Indication: PROPHYLAXIS
     Route: 048
     Dates: start: 20111122, end: 20111122
  19. CALONAL [Concomitant]
     Indication: PROPHYLAXIS
     Route: 048
     Dates: start: 20120125, end: 20120125
  20. CALONAL [Concomitant]
     Indication: PROPHYLAXIS
     Route: 048
     Dates: start: 20111122, end: 20111122
  21. CALONAL [Concomitant]
     Indication: PROPHYLAXIS
     Route: 048
     Dates: start: 20120718, end: 20120718
  22. CALONAL [Concomitant]
     Indication: PROPHYLAXIS
     Route: 048
     Dates: start: 20110830, end: 20110830
  23. CALONAL [Concomitant]
     Indication: PROPHYLAXIS
     Route: 048
     Dates: start: 20110816, end: 20110816
  24. CALONAL [Concomitant]
     Indication: PROPHYLAXIS
     Route: 048
     Dates: start: 20120523, end: 20120523
  25. CALONAL [Concomitant]
     Indication: PROPHYLAXIS
     Route: 048
     Dates: start: 20120321, end: 20120321
  26. CALONAL [Concomitant]
     Indication: PROPHYLAXIS
     Route: 048
     Dates: start: 20120912, end: 20120912
  27. CALONAL [Concomitant]
     Indication: PROPHYLAXIS
     Route: 048
     Dates: start: 20110928, end: 20110928
  28. RADEN [Concomitant]
     Indication: PROPHYLAXIS
     Route: 048
     Dates: start: 20110928
  29. PENTASA [Concomitant]
     Indication: COLITIS ULCERATIVE
     Route: 048
     Dates: start: 201107
  30. STERONEMA [Concomitant]
     Indication: COLITIS ULCERATIVE
     Route: 048
     Dates: start: 201107, end: 20111130

REACTIONS (2)
  - Carpal tunnel syndrome [Recovered/Resolved]
  - Insomnia [Recovered/Resolved]
